FAERS Safety Report 19914235 (Version 2)
Quarter: 2021Q4

REPORT INFORMATION
  Report Type: Report from Study
  Country: US (occurrence: US)
  Receive Date: 20211005
  Receipt Date: 20211028
  Transmission Date: 20220303
  Serious: Yes (Hospitalization, Other)
  Sender: FDA-Public Use
  Company Number: NVSC2021US223753

PATIENT
  Sex: Male

DRUGS (1)
  1. ENTRESTO [Suspect]
     Active Substance: SACUBITRIL\VALSARTAN
     Indication: Product used for unknown indication
     Dosage: 24/26 MGS (SACUBITRIL 24.3 MG, VALSARTAN 25.7 MG), BID
     Route: 048

REACTIONS (4)
  - COVID-19 [Unknown]
  - Gastric disorder [Unknown]
  - Gastric haemorrhage [Unknown]
  - Feeling abnormal [Unknown]
